FAERS Safety Report 8984213 (Version 1)
Quarter: 2012Q4

REPORT INFORMATION
  Report Type: 
  Country: GB (occurrence: GB)
  Receive Date: 20121226
  Receipt Date: 20121226
  Transmission Date: 20130627
  Serious: Yes (Hospitalization, Other)
  Sender: FDA-Public Use
  Company Number: PHFR2012GB005450

PATIENT
  Age: 36 Year
  Sex: Male

DRUGS (5)
  1. CLOZARIL [Suspect]
     Indication: SCHIZOPHRENIA
     Dosage: UNK UKN, UNK
     Route: 048
     Dates: start: 20121009
  2. CLOZARIL [Suspect]
     Dosage: UNK UKN, Recommenced
     Route: 048
  3. RISPERIDONE [Concomitant]
     Indication: SCHIZOPHRENIA
     Dosage: 3 mg, UNK
     Route: 048
     Dates: end: 20121014
  4. DIAZEPAM [Concomitant]
     Indication: ANXIETY
     Dosage: 5 mg, UNK
     Route: 048
     Dates: start: 201002, end: 201211
  5. TEMAZEPAM [Concomitant]
     Indication: INSOMNIA
     Dosage: 20 mg, UNK
     Route: 048
     Dates: start: 201208, end: 201211

REACTIONS (3)
  - Polydipsia [Recovered/Resolved]
  - Water intoxication [Recovered/Resolved]
  - Somatic delusion [Unknown]
